FAERS Safety Report 13773279 (Version 1)
Quarter: 2017Q3

REPORT INFORMATION
  Report Type: Spontaneous
  Country: US (occurrence: US)
  Receive Date: 20170720
  Receipt Date: 20170720
  Transmission Date: 20171127
  Serious: No
  Sender: FDA-Public Use
  Company Number: US-PFIZER INC-2017312387

PATIENT
  Age: 55 Year
  Sex: Female

DRUGS (1)
  1. GABAPENTIN. [Suspect]
     Active Substance: GABAPENTIN
     Indication: FIBROMYALGIA
     Dosage: 900 MG, DAILY (3 TABLETS AT NIGHT, 900 MG/DAY)
     Route: 048

REACTIONS (4)
  - Somnolence [Unknown]
  - Intentional product use issue [Unknown]
  - Dizziness [Unknown]
  - Drug ineffective for unapproved indication [Unknown]
